FAERS Safety Report 10520464 (Version 1)
Quarter: 2014Q4

REPORT INFORMATION
  Report Type: Spontaneous
  Country: FR (occurrence: FR)
  Receive Date: 20141015
  Receipt Date: 20141015
  Transmission Date: 20150528
  Serious: Yes (Hospitalization)
  Sender: FDA-Public Use
  Company Number: FR-BAXTER-2014BAX060167

PATIENT
  Age: 67 Year
  Sex: Female

DRUGS (8)
  1. UROMITEXAN 5 G/50 ML, SOLUTION INJECTABLE POUR PERFUSION EN FLACON [Suspect]
     Active Substance: MESNA
     Indication: PRODUCT USED FOR UNKNOWN INDICATION
     Dosage: 2 INJECTIONS, DAY 2
     Route: 065
     Dates: start: 20130726, end: 20130726
  2. FASTURTEC [Suspect]
     Active Substance: RASBURICASE
     Indication: PROPHYLAXIS
     Dosage: IN THE MORNING, ONCE ON DAY 2
     Route: 042
     Dates: start: 20130726, end: 20130726
  3. CEFTRIAXONE. [Suspect]
     Active Substance: CEFTRIAXONE
     Indication: PRODUCT USED FOR UNKNOWN INDICATION
     Dosage: FROM DAY 2 TO DAY 4
     Route: 042
     Dates: start: 20130726, end: 20130729
  4. MABTHERA [Suspect]
     Active Substance: RITUXIMAB
     Indication: B-CELL LYMPHOMA
     Dosage: ONCE, ON DAY 1
     Route: 042
     Dates: start: 20130725, end: 20130725
  5. ETOPOSIDE TEVA [Suspect]
     Active Substance: ETOPOSIDE
     Indication: B-CELL LYMPHOMA
     Dosage: ONCE PER DAY, DAY 1 TO DAY3
     Route: 042
     Dates: start: 20130725, end: 20130727
  6. CARBOPLATINE HOSPIRA [Suspect]
     Active Substance: CARBOPLATIN
     Indication: B-CELL LYMPHOMA
     Dosage: ONCE ON DAY 2
     Route: 042
     Dates: start: 20130726, end: 20130726
  7. AMIKACINE MYLAN [Suspect]
     Active Substance: AMIKACIN
     Indication: PRODUCT USED FOR UNKNOWN INDICATION
     Dosage: FROM DAY 2 TO DAY 4
     Route: 042
     Dates: start: 20130726, end: 20130729
  8. IFOSFAMIDE EG [Suspect]
     Active Substance: IFOSFAMIDE
     Indication: B-CELL LYMPHOMA
     Dosage: ONCE ON DAY 2
     Route: 042
     Dates: start: 20130726, end: 20130726

REACTIONS (1)
  - Encephalopathy [Recovered/Resolved]

NARRATIVE: CASE EVENT DATE: 20130726
